FAERS Safety Report 10098389 (Version 1)
Quarter: 2014Q2

REPORT INFORMATION
  Report Type: Spontaneous
  Country: TR (occurrence: None)
  Receive Date: 20140421
  Receipt Date: 20140421
  Transmission Date: 20141212
  Serious: Yes (Death, Hospitalization)
  Sender: FDA-Public Use
  Company Number: 2014AP002634

PATIENT
  Age: 67 Year
  Sex: Male

DRUGS (2)
  1. SERTRALINE [Suspect]
     Indication: MAJOR DEPRESSION
  2. MIRTAZAPINE [Suspect]
     Indication: MAJOR DEPRESSION

REACTIONS (4)
  - Cardiac arrest [None]
  - Ventricular tachycardia [None]
  - Drug interaction [None]
  - Respiratory arrest [None]
